FAERS Safety Report 7642775-4 (Version None)
Quarter: 2011Q3

REPORT INFORMATION
  Report Type: 
  Country: None (occurrence: None)
  Receive Date: 20110728
  Receipt Date: 20110726
  Transmission Date: 20111222
  Serious: Yes (Death, Other)
  Sender: FDA-Public Use
  Company Number: PHHY2011GB20257

PATIENT
  Sex: Male

DRUGS (6)
  1. AZULFIDINE [Concomitant]
     Dosage: 3 G, UNK
     Dates: start: 20050301, end: 20071201
  2. ACETAMINOPHEN [Concomitant]
     Indication: PAIN
     Dosage: 1 G, PRN
     Route: 048
     Dates: start: 20050101, end: 20071201
  3. ARAVA [Interacting]
     Indication: RHEUMATOID ARTHRITIS
     Dosage: UNK UKN, UNK
     Dates: start: 20070901
  4. CORTICOSTEROIDS [Concomitant]
     Route: 030
  5. METHOTREXATE [Suspect]
     Indication: RHEUMATOID ARTHRITIS
     Dosage: UNK UKN, UNK
     Dates: start: 20060301
  6. CODEINE SULFATE [Concomitant]
     Indication: PAIN
     Dosage: 30 MG, PRN
     Route: 048

REACTIONS (9)
  - DYSPNOEA [None]
  - COUGH [None]
  - ALANINE AMINOTRANSFERASE INCREASED [None]
  - INTERSTITIAL LUNG DISEASE [None]
  - FATIGUE [None]
  - PYREXIA [None]
  - RESPIRATORY FAILURE [None]
  - TACHYPNOEA [None]
  - DRUG INTERACTION [None]
